FAERS Safety Report 16170216 (Version 5)
Quarter: 2019Q3

REPORT INFORMATION
  Report Type: Report from Study
  Country: IT (occurrence: IT)
  Receive Date: 20190408
  Receipt Date: 20190802
  Transmission Date: 20191004
  Serious: Yes (Death, Hospitalization, Other)
  Sender: FDA-Public Use
  Company Number: PHHY2019IT079551

PATIENT
  Age: 64 Year
  Sex: Male

DRUGS (5)
  1. TRAMETINIB [Suspect]
     Active Substance: TRAMETINIB
     Dosage: 2 MG, QD
     Route: 048
     Dates: start: 20190227, end: 20190331
  2. TAFINLAR [Suspect]
     Active Substance: DABRAFENIB MESYLATE
     Indication: METASTATIC MALIGNANT MELANOMA
     Dosage: 300 MG, QD
     Route: 048
     Dates: start: 20181203, end: 20190201
  3. TRAMETINIB [Suspect]
     Active Substance: TRAMETINIB
     Indication: METASTATIC MALIGNANT MELANOMA
     Dosage: 2 MG, QD
     Route: 048
     Dates: start: 20181203, end: 20190201
  4. GANFORT [Concomitant]
     Active Substance: BIMATOPROST\TIMOLOL
     Indication: GLAUCOMA
     Dosage: UNK, QD
     Route: 061
     Dates: start: 20181126
  5. TAFINLAR [Suspect]
     Active Substance: DABRAFENIB MESYLATE
     Dosage: 300 MG, QD
     Route: 048
     Dates: start: 20190227, end: 20190331

REACTIONS (7)
  - Neutropenia [Recovered/Resolved]
  - Cough [Fatal]
  - Infection [Unknown]
  - Septic shock [Fatal]
  - Pyrexia [Fatal]
  - Blood creatine phosphokinase increased [Recovering/Resolving]
  - Acute hepatic failure [Recovered/Resolved]

NARRATIVE: CASE EVENT DATE: 20190201
